FAERS Safety Report 21991065 (Version 1)
Quarter: 2023Q1

REPORT INFORMATION
  Report Type: Spontaneous
  Country: US (occurrence: US)
  Receive Date: 20230214
  Receipt Date: 20230214
  Transmission Date: 20230417
  Serious: No
  Sender: FDA-Public Use
  Company Number: US-SA-SAC20230210001353

PATIENT
  Sex: Female
  Weight: 81 kg

DRUGS (3)
  1. DUPIXENT [Suspect]
     Active Substance: DUPILUMAB
     Indication: Dermatitis atopic
     Dosage: 300 MG, QOW
     Route: 058
     Dates: start: 20220810
  2. DUPIXENT [Suspect]
     Active Substance: DUPILUMAB
     Indication: Illness
  3. MIRENA [Concomitant]
     Active Substance: LEVONORGESTREL
     Dosage: UNK, QD

REACTIONS (3)
  - Dry skin [Unknown]
  - Pruritus [Unknown]
  - Middle insomnia [Unknown]
